FAERS Safety Report 21886844 (Version 1)
Quarter: 2023Q1

REPORT INFORMATION
  Report Type: Report from Study
  Country: US (occurrence: US)
  Receive Date: 20230119
  Receipt Date: 20230119
  Transmission Date: 20230417
  Serious: Yes (Death, Other)
  Sender: FDA-Public Use
  Company Number: US-GW PHARMA-2022-US-030820

PATIENT
  Sex: Male
  Weight: 23.1 kg

DRUGS (1)
  1. EPIDIOLEX [Suspect]
     Active Substance: CANNABIDIOL
     Indication: Lennox-Gastaut syndrome
     Dosage: 1.5 MILLILITER, BID

REACTIONS (3)
  - Death [Fatal]
  - Agitation [Unknown]
  - Product dose omission issue [Unknown]
